FAERS Safety Report 20895218 (Version 4)
Quarter: 2022Q4

REPORT INFORMATION
  Report Type: Report from Study
  Country: US (occurrence: US)
  Receive Date: 20220531
  Receipt Date: 20221201
  Transmission Date: 20230113
  Serious: Yes (Other)
  Sender: FDA-Public Use
  Company Number: US-BIOVITRUM-2022US06029

PATIENT
  Sex: Female

DRUGS (2)
  1. KINERET [Suspect]
     Active Substance: ANAKINRA
     Indication: Rheumatoid arthritis
     Dates: start: 20190422, end: 202207
  2. KINERET [Suspect]
     Active Substance: ANAKINRA
     Dates: start: 20190419

REACTIONS (7)
  - Hallucination [Unknown]
  - COVID-19 [Unknown]
  - Confusional state [Unknown]
  - Adverse drug reaction [Unknown]
  - Injection site pain [Unknown]
  - Intentional dose omission [Unknown]
  - Drug ineffective [Unknown]
